FAERS Safety Report 4599335-1 (Version None)
Quarter: 2005Q1

REPORT INFORMATION
  Report Type: 
  Country: None (occurrence: None)
  Receive Date: 20050302
  Receipt Date: 20050217
  Transmission Date: 20050727
  Serious: Yes (Other)
  Sender: FDA-Public Use
  Company Number: HQWYE134607FEB05

PATIENT
  Age: 68 Year
  Sex: Male

DRUGS (5)
  1. CORDARONE [Suspect]
     Indication: ATRIAL FIBRILLATION
     Dosage: 200 MG 1X PER 1 DAY ORAL
     Route: 048
     Dates: start: 19950101
  2. ATACAND [Concomitant]
  3. SINTROM [Concomitant]
  4. TRAZOLAN (TRAZODONE HYDROCHLORIDE) [Concomitant]
  5. LIPITOR [Concomitant]

REACTIONS (3)
  - HEPATIC STEATOSIS [None]
  - HYPERHIDROSIS [None]
  - PANCREATIC DISORDER [None]
